FAERS Safety Report 22116466 (Version 1)
Quarter: 2023Q1

REPORT INFORMATION
  Report Type: Spontaneous
  Country: HU (occurrence: HU)
  Receive Date: 20230320
  Receipt Date: 20230320
  Transmission Date: 20230418
  Serious: Yes (Other)
  Sender: FDA-Public Use
  Company Number: HU-BoehringerIngelheim-2023-BI-225909

PATIENT

DRUGS (2)
  1. SYNJARDY [Suspect]
     Active Substance: EMPAGLIFLOZIN\METFORMIN HYDROCHLORIDE
     Indication: Type 2 diabetes mellitus
  2. OZEMPIC [Suspect]
     Active Substance: SEMAGLUTIDE
     Indication: Type 2 diabetes mellitus

REACTIONS (5)
  - Neovascular age-related macular degeneration [Recovering/Resolving]
  - Neovascular age-related macular degeneration [Recovering/Resolving]
  - Ophthalmic migraine [Recovered/Resolved]
  - Ophthalmic migraine [Recovered/Resolved]
  - Macular scar [Not Recovered/Not Resolved]

NARRATIVE: CASE EVENT DATE: 20190101
